FAERS Safety Report 6037366-5 (Version None)
Quarter: 2009Q1

REPORT INFORMATION
  Report Type: 
  Country: None (occurrence: None)
  Receive Date: 20090114
  Receipt Date: 20090105
  Transmission Date: 20090719
  Serious: Yes (Hospitalization)
  Sender: FDA-Public Use
  Company Number: JP-GENENTECH-270748

PATIENT
  Sex: Male
  Weight: 56 kg

DRUGS (10)
  1. AVASTIN [Suspect]
     Indication: COLON CANCER METASTATIC
     Dosage: 5 MG/KG, Q2W
     Route: 041
     Dates: start: 20080605, end: 20081023
  2. ELPLAT [Suspect]
     Indication: COLON CANCER METASTATIC
     Dosage: 130 MG, Q2W
     Route: 041
     Dates: start: 20080407, end: 20081023
  3. IRINOTECAN HCL [Concomitant]
     Indication: DRUG USE FOR UNKNOWN INDICATION
     Dosage: UNK
  4. 5-FU [Concomitant]
     Indication: DRUG USE FOR UNKNOWN INDICATION
     Dosage: UNK
     Dates: start: 20080407, end: 20081023
  5. LEVOLEUCOVORIN CALCIUM [Concomitant]
     Indication: DRUG USE FOR UNKNOWN INDICATION
     Dosage: UNK
     Dates: start: 20080407, end: 20081023
  6. CHINESE MEDICINE [Concomitant]
     Indication: DRUG USE FOR UNKNOWN INDICATION
     Dosage: UNK
     Dates: start: 20080318
  7. KYTRIL [Concomitant]
     Indication: DRUG USE FOR UNKNOWN INDICATION
     Dosage: UNK
     Dates: start: 20080407
  8. DECADRON [Concomitant]
     Indication: DRUG USE FOR UNKNOWN INDICATION
     Dosage: UNK
     Dates: start: 20080407
  9. MUCOSTA [Concomitant]
     Indication: DRUG USE FOR UNKNOWN INDICATION
     Dosage: UNK
     Dates: start: 20080407
  10. LEUCON [Concomitant]
     Indication: DRUG USE FOR UNKNOWN INDICATION
     Dosage: UNK
     Dates: start: 20080407

REACTIONS (3)
  - FLUSHING [None]
  - HYPERHIDROSIS [None]
  - NEUROPATHY PERIPHERAL [None]
